FAERS Safety Report 15453699 (Version 1)
Quarter: 2018Q4

REPORT INFORMATION
  Report Type: Spontaneous
  Country: US (occurrence: US)
  Receive Date: 20181001
  Receipt Date: 20181001
  Transmission Date: 20190204
  Serious: Yes (Hospitalization)
  Sender: FDA-Public Use
  Company Number: US-PFIZER INC-2018392481

PATIENT
  Age: 73 Year
  Sex: Female
  Weight: 77.11 kg

DRUGS (5)
  1. ASPIRIN [ACETYLSALICYLIC ACID] [Concomitant]
     Active Substance: ASPIRIN
     Dosage: 81 MG, DAILY
  2. ANASTROZOLE. [Concomitant]
     Active Substance: ANASTROZOLE
     Indication: NEOPLASM MALIGNANT
     Dosage: 1 MG, DAILY
     Dates: start: 20180726
  3. PRILOSEC [OMEPRAZOLE] [Concomitant]
     Indication: HYPERCHLORHYDRIA
     Dosage: 20 MG, DAILY
  4. IBRANCE [Suspect]
     Active Substance: PALBOCICLIB
     Indication: BREAST CANCER METASTATIC
     Dosage: 125 MG, CYCLIC (DAILY FOR 21 DAYS ON AND 7 DAYS OFF )
     Route: 048
     Dates: start: 20180808, end: 20180828
  5. PRAVASTATIN. [Concomitant]
     Active Substance: PRAVASTATIN
     Indication: BLOOD CHOLESTEROL INCREASED
     Dosage: 40 MG, DAILY
     Dates: start: 2013

REACTIONS (7)
  - Asthenia [Unknown]
  - Oral pain [Recovering/Resolving]
  - Dyspepsia [Unknown]
  - Oral candidiasis [Recovered/Resolved]
  - Oral pain [Recovering/Resolving]
  - White blood cell count decreased [Recovered/Resolved]
  - Dysphagia [Recovered/Resolved]

NARRATIVE: CASE EVENT DATE: 201808
